FAERS Safety Report 13736017 (Version 2)
Quarter: 2017Q3

REPORT INFORMATION
  Report Type: Spontaneous
  Country: CA (occurrence: CA)
  Receive Date: 20170710
  Receipt Date: 20170713
  Transmission Date: 20171127
  Serious: Yes (Hospitalization)
  Sender: FDA-Public Use
  Company Number: CA-ROCHE-1960411

PATIENT
  Age: 47 Year
  Sex: Male

DRUGS (5)
  1. LUCENTIS [Suspect]
     Active Substance: RANIBIZUMAB
     Dosage: 0.5 MG, UNK
     Route: 065
  2. AVASTIN [Suspect]
     Active Substance: BEVACIZUMAB
     Indication: PRODUCT USED FOR UNKNOWN INDICATION
     Route: 042
  3. LUCENTIS [Suspect]
     Active Substance: RANIBIZUMAB
     Indication: DIABETIC RETINAL OEDEMA
     Dosage: UNK
     Route: 050
  4. LUCENTIS [Suspect]
     Active Substance: RANIBIZUMAB
     Dosage: 0.5 MG, UNK
     Route: 065
  5. INSULIN [Concomitant]
     Active Substance: INSULIN NOS
     Indication: PRODUCT USED FOR UNKNOWN INDICATION
     Route: 048

REACTIONS (19)
  - Ocular discomfort [Recovered/Resolved]
  - Blood pressure increased [Recovered/Resolved]
  - Diabetic retinopathy [Recovered/Resolved]
  - Hypoaesthesia [Recovered/Resolved]
  - Increased insulin requirement [Recovered/Resolved]
  - Stress [Recovered/Resolved]
  - Eye haemorrhage [Recovered/Resolved]
  - Malaise [Recovered/Resolved]
  - Vision blurred [Recovered/Resolved]
  - Aphonia [Recovered/Resolved]
  - Blindness transient [Recovered/Resolved]
  - Eye disorder [Recovered/Resolved]
  - Suture rupture [Recovered/Resolved]
  - Vitreous floaters [Recovered/Resolved]
  - Vitreous haemorrhage [Recovered/Resolved]
  - Infection [Recovered/Resolved]
  - Visual impairment [Recovered/Resolved]
  - Diabetic foot [Recovered/Resolved]
  - Inappropriate schedule of drug administration [Unknown]
